FAERS Safety Report 10334348 (Version 1)
Quarter: 2014Q3

REPORT INFORMATION
  Report Type: Spontaneous
  Country: US (occurrence: None)
  Receive Date: 20140721
  Receipt Date: 20140721
  Transmission Date: 20150326
  Serious: Yes (Hospitalization)
  Sender: FDA-Public Use
  Company Number: 2014AP003633

PATIENT
  Age: 65 Year
  Sex: Female
  Weight: 49 kg

DRUGS (5)
  1. CLONIDINE (CLONIDINE) [Concomitant]
     Active Substance: CLONIDINE
  2. CALCITRIOL (CALCITRIOL) [Concomitant]
  3. FERRIPROX [Suspect]
     Active Substance: DEFERIPRONE
     Indication: MYELODYSPLASTIC SYNDROME
     Route: 048
     Dates: start: 20140606, end: 20140627
  4. EPOGEN [Concomitant]
     Active Substance: ERYTHROPOIETIN
  5. LABETALOL [Concomitant]
     Active Substance: LABETALOL\LABETALOL HYDROCHLORIDE

REACTIONS (4)
  - Vomiting [None]
  - Dyspnoea [None]
  - Abdominal pain upper [None]
  - Dehydration [None]

NARRATIVE: CASE EVENT DATE: 20140627
